FAERS Safety Report 13222364 (Version 1)
Quarter: 2017Q1

REPORT INFORMATION
  Report Type: Spontaneous
  Country: CA (occurrence: CA)
  Receive Date: 20170211
  Receipt Date: 20170211
  Transmission Date: 20170428
  Serious: Yes (Hospitalization, Other)
  Sender: FDA-Public Use
  Company Number: CA-JNJFOC-20170128203

PATIENT
  Age: 22 Month
  Sex: Male
  Weight: 13.15 kg

DRUGS (1)
  1. INFANTS TYLENOL [Suspect]
     Active Substance: ACETAMINOPHEN
     Indication: PYREXIA
     Dosage: 6 HOURS
     Route: 048
     Dates: end: 20170128

REACTIONS (3)
  - Incorrect dose administered [Unknown]
  - Seizure [Recovered/Resolved]
  - Vomiting [Recovered/Resolved]
